FAERS Safety Report 17456074 (Version 1)
Quarter: 2020Q1

REPORT INFORMATION
  Report Type: Spontaneous
  Country: US (occurrence: US)
  Receive Date: 20200225
  Receipt Date: 20200225
  Transmission Date: 20200409
  Serious: Yes (Death)
  Sender: FDA-Public Use
  Company Number: None

PATIENT
  Age: 86 Year
  Sex: Female

DRUGS (2)
  1. UNKNOWN [Concomitant]
     Active Substance: UNSPECIFIED INGREDIENT
  2. LEUKERAN [Suspect]
     Active Substance: CHLORAMBUCIL
     Indication: B-CELL LYMPHOMA
     Dosage: ?          OTHER FREQUENCY:QD FOR 5 DAYS;?
     Route: 048

REACTIONS (1)
  - Death [None]
